FAERS Safety Report 7512100-8 (Version None)
Quarter: 2011Q2

REPORT INFORMATION
  Report Type: 
  Country: None (occurrence: None)
  Receive Date: 20110531
  Receipt Date: 20110512
  Transmission Date: 20111010
  Serious: Yes (Other)
  Sender: FDA-Public Use
  Company Number: US-ASTRAZENECA-2009SE24996

PATIENT
  Sex: Female
  Weight: 80.7 kg

DRUGS (2)
  1. SYMBICORT [Suspect]
     Dosage: 160/4.5 MG
     Route: 055
  2. SYMBICORT [Suspect]
     Dosage: 80/4.5 MG
     Route: 055
     Dates: start: 20090912, end: 20091012

REACTIONS (5)
  - ASTHMA [None]
  - CYANOSIS [None]
  - SURGERY [None]
  - LACRIMATION INCREASED [None]
  - NASOPHARYNGITIS [None]
